FAERS Safety Report 4295670-5 (Version None)
Quarter: 2004Q1

REPORT INFORMATION
  Report Type: 
  Country: None (occurrence: None)
  Receive Date: 20040216
  Receipt Date: 20030808
  Transmission Date: 20041129
  Serious: No
  Sender: FDA-Public Use
  Company Number: US-GLAXOSMITHKLINE-A0420256A

PATIENT
  Sex: Male

DRUGS (2)
  1. PAXIL [Suspect]
     Indication: DEPRESSION
  2. RANITIDINE [Concomitant]
     Indication: HYPERCHLORHYDRIA

REACTIONS (2)
  - ABNORMAL BEHAVIOUR [None]
  - IRRITABILITY [None]
